FAERS Safety Report 7356830 (Version 2)
Quarter: 2014Q3

REPORT INFORMATION
  Report Type: Spontaneous
  Country: US (occurrence: None)
  Receive Date: 20100401
  Receipt Date: 20140714
  Transmission Date: 20150326
  Serious: Yes (Other)
  Sender: FDA-Public Use
  Company Number: 2010S1001852

PATIENT
  Age: 67 Year
  Sex: Female

DRUGS (2)
  1. PHOSPHO-SODA [Suspect]
     Active Substance: SODIUM PHOSPHATE, DIBASIC\SODIUM PHOSPHATE, MONOBASIC
     Indication: COLONOSCOPY
     Dosage: PO
     Route: 048
     Dates: start: 20080828, end: 20080828
  2. ZOFRAN (ONDANSETRON) [Concomitant]

REACTIONS (12)
  - Renal tubular necrosis [None]
  - Renal failure chronic [None]
  - Blood immunoglobulin M increased [None]
  - Hypotension [None]
  - Blood calcium increased [None]
  - Monoclonal gammopathy [None]
  - Nephrogenic anaemia [None]
  - Vertigo [None]
  - Blood viscosity increased [None]
  - Procedural nausea [None]
  - Dizziness [None]
  - Renal failure acute [None]
